FAERS Safety Report 16328058 (Version 1)
Quarter: 2019Q2

REPORT INFORMATION
  Report Type: Spontaneous
  Country: US (occurrence: US)
  Receive Date: 20190518
  Receipt Date: 20190518
  Transmission Date: 20190711
  Serious: No
  Sender: FDA-Public Use
  Company Number: US-BION-007866

PATIENT
  Age: 37 Year
  Sex: Male

DRUGS (1)
  1. CLOBAZAM. [Suspect]
     Active Substance: CLOBAZAM
     Indication: TEMPORAL LOBE EPILEPSY
     Dosage: STRENGTH: 10 MG, DOSE INCREASED TO 10 MG

REACTIONS (4)
  - Urinary hesitation [Unknown]
  - Mood swings [Unknown]
  - Irritability [Unknown]
  - Dysuria [Unknown]
